FAERS Safety Report 8138584-2 (Version None)
Quarter: 2012Q1

REPORT INFORMATION
  Report Type: 
  Country: None (occurrence: None)
  Receive Date: 20120215
  Receipt Date: 20120210
  Transmission Date: 20120608
  Serious: Yes (Hospitalization)
  Sender: FDA-Public Use
  Company Number: GB-TEVA-321854ISR

PATIENT
  Age: 51 Year
  Sex: Male

DRUGS (7)
  1. ALLOPURINOL [Concomitant]
     Route: 048
  2. MORPHINE [Suspect]
     Indication: ANALGESIC THERAPY
     Route: 048
  3. AMLODIPINE [Concomitant]
     Route: 048
  4. PRAVASTATIN [Concomitant]
     Route: 048
  5. TRANDOLAPRIL [Concomitant]
     Route: 048
  6. BISOPROLOL FUMARATE [Concomitant]
     Route: 048
  7. RANITIDINE [Concomitant]
     Route: 048

REACTIONS (2)
  - HALLUCINATION [None]
  - CONFUSIONAL STATE [None]
